FAERS Safety Report 19993308 (Version 2)
Quarter: 2021Q4

REPORT INFORMATION
  Report Type: Report from Study
  Country: RU (occurrence: RU)
  Receive Date: 20211025
  Receipt Date: 20211102
  Transmission Date: 20220303
  Serious: Yes (Hospitalization)
  Sender: FDA-Public Use
  Company Number: RU-CELGENE-RUS-20210603360

PATIENT
  Age: 60 Year
  Sex: Female

DRUGS (37)
  1. OZANIMOD [Suspect]
     Active Substance: OZANIMOD
     Indication: Colitis ulcerative
     Route: 048
     Dates: end: 20210610
  2. GLYBURIDE [Concomitant]
     Active Substance: GLYBURIDE
     Indication: Diabetes mellitus
     Dosage: 3 PILLS
     Route: 048
     Dates: start: 2009, end: 20210114
  3. METFORMIN [Concomitant]
     Active Substance: METFORMIN HYDROCHLORIDE
     Indication: Diabetes mellitus
     Dosage: 2000 MILLIGRAM
     Route: 048
     Dates: start: 2009, end: 20210114
  4. CATHEJELL WITH LIDOCAINE [Concomitant]
     Indication: Colonoscopy
     Route: 054
     Dates: start: 20201109, end: 20201109
  5. CATHEJELL WITH LIDOCAINE [Concomitant]
     Route: 054
     Dates: start: 20211012, end: 20211012
  6. POLYETHYLENE GLYCOL 4000\POTASSIUM CHLORIDE\SODIUM BICARBONATE\SODIUM [Concomitant]
     Active Substance: POLYETHYLENE GLYCOL 4000\POTASSIUM CHLORIDE\SODIUM BICARBONATE\SODIUM CHLORIDE\SODIUM SULFATE
     Indication: Bowel preparation
     Route: 048
     Dates: start: 20201108, end: 20201108
  7. POLYETHYLENE GLYCOL 4000\POTASSIUM CHLORIDE\SODIUM BICARBONATE\SODIUM [Concomitant]
     Active Substance: POLYETHYLENE GLYCOL 4000\POTASSIUM CHLORIDE\SODIUM BICARBONATE\SODIUM CHLORIDE\SODIUM SULFATE
     Route: 048
     Dates: start: 20211011, end: 20211011
  8. AMLODIPINE [Concomitant]
     Active Substance: AMLODIPINE BESYLATE
     Indication: Hypertension
     Dosage: 5 MILLIGRAM
     Route: 048
     Dates: start: 20210114, end: 202103
  9. MOXONIDINE [Concomitant]
     Active Substance: MOXONIDINE
     Indication: Hypertension
     Dosage: .4 MILLIGRAM
     Route: 048
     Dates: start: 20210115, end: 202103
  10. BISOPROLOL [Concomitant]
     Active Substance: BISOPROLOL
     Indication: Hypertension
     Dosage: 7.5 MILLIGRAM
     Route: 048
     Dates: start: 2010, end: 20210114
  11. BISOPROLOL [Concomitant]
     Active Substance: BISOPROLOL
     Dosage: 10 MILLIGRAM
     Route: 048
     Dates: start: 20210115, end: 20210120
  12. BISOPROLOL [Concomitant]
     Active Substance: BISOPROLOL
     Dosage: 5 MILLIGRAM
     Route: 048
     Dates: start: 20210121
  13. LOSARTAN [Concomitant]
     Active Substance: LOSARTAN
     Indication: Hypertension
     Dosage: 25 MILLIGRAM
     Route: 048
     Dates: start: 20210115, end: 20210120
  14. LOSARTAN [Concomitant]
     Active Substance: LOSARTAN
     Dosage: 100 MILLIGRAM
     Route: 048
     Dates: start: 20210121, end: 202103
  15. PROTAPHANE [Concomitant]
     Active Substance: INSULIN HUMAN
     Indication: Diabetes mellitus
     Dosage: 22 MILLIEQUIVALENTS
     Route: 058
     Dates: start: 20210115, end: 20210126
  16. PROTAPHANE [Concomitant]
     Active Substance: INSULIN HUMAN
     Dosage: 14 MILLIEQUIVALENTS
     Route: 058
     Dates: start: 20210114, end: 20210125
  17. Isofan-insulin HM [Concomitant]
     Indication: Diabetes mellitus
     Dosage: 24 MILLIEQUIVALENTS
     Route: 058
     Dates: start: 20210127, end: 20210202
  18. Isofan-insulin HM [Concomitant]
     Dosage: 14 MILLIEQUIVALENTS
     Route: 058
     Dates: start: 20210126, end: 20210202
  19. Isofan-insulin HM [Concomitant]
     Dosage: 26 MILLIEQUIVALENTS
     Route: 058
     Dates: start: 20210203, end: 20210414
  20. Isofan-insulin HM [Concomitant]
     Dosage: 16 MILLIEQUIVALENTS
     Route: 058
     Dates: start: 20210203, end: 20210414
  21. NOVORAPID [Concomitant]
     Active Substance: INSULIN ASPART
     Indication: Diabetes mellitus
     Dosage: 6 MILLIEQUIVALENTS
     Route: 058
     Dates: start: 20210114, end: 20210126
  22. NOVORAPID [Concomitant]
     Active Substance: INSULIN ASPART
     Dosage: 12 MILLIEQUIVALENTS
     Route: 058
     Dates: start: 20210115, end: 20210126
  23. NOVORAPID [Concomitant]
     Active Substance: INSULIN ASPART
     Dosage: 24 MILLIEQUIVALENTS
     Route: 058
     Dates: start: 20210127, end: 20210202
  24. NOVORAPID [Concomitant]
     Active Substance: INSULIN ASPART
     Dosage: 36 MILLIEQUIVALENTS
     Route: 058
     Dates: start: 20210203, end: 20210414
  25. NOVORAPID [Concomitant]
     Active Substance: INSULIN ASPART
     Dosage: 18 MILLIEQUIVALENTS
     Route: 058
     Dates: start: 20210415
  26. NOVORAPID [Concomitant]
     Active Substance: INSULIN ASPART
     Dosage: 18 MILLIEQUIVALENTS
     Route: 058
     Dates: start: 20210930
  27. LEVEMIR [Concomitant]
     Active Substance: INSULIN DETEMIR
     Indication: Diabetes mellitus
     Dosage: 18 MILLIEQUIVALENTS
     Route: 058
     Dates: start: 20210415
  28. LEVEMIR [Concomitant]
     Active Substance: INSULIN DETEMIR
     Dosage: 10 MILLIEQUIVALENTS
     Route: 058
     Dates: start: 20210415
  29. LEVEMIR [Concomitant]
     Active Substance: INSULIN DETEMIR
     Dosage: 10 MILLIEQUIVALENTS
     Route: 058
     Dates: start: 20210930
  30. SULFASALAZINE [Concomitant]
     Active Substance: SULFASALAZINE
     Indication: Colitis ulcerative
     Dosage: 3 GRAM
     Route: 048
     Dates: start: 2009, end: 20210208
  31. SULFASALAZINE [Concomitant]
     Active Substance: SULFASALAZINE
     Dosage: 2 GRAM
     Route: 048
     Dates: start: 20210209
  32. DIOSMIN\HESPERIDIN [Concomitant]
     Active Substance: DIOSMIN\HESPERIDIN
     Indication: Haemorrhoids
     Dosage: 1000 MILLIGRAM
     Route: 048
     Dates: start: 20210209, end: 20210407
  33. RELIEF ADVANCE [Concomitant]
     Indication: Haemorrhoids
     Dosage: 1 CANDLE
     Route: 054
     Dates: start: 20210209, end: 20210218
  34. LISINOPRIL [Concomitant]
     Active Substance: LISINOPRIL
     Indication: Hypertension
     Dosage: 5 MILLIGRAM
     Route: 048
     Dates: start: 20210429
  35. INDAPAMIDE [Concomitant]
     Active Substance: INDAPAMIDE
     Indication: Hypertension
     Dosage: 1.5 MILLIGRAM
     Route: 048
     Dates: start: 20210429
  36. AMARYL [Concomitant]
     Active Substance: GLIMEPIRIDE
     Indication: Diabetes mellitus
     Dosage: 3 MILLIGRAM
     Route: 048
     Dates: start: 20211001
  37. GLUCOPHAGE [Concomitant]
     Active Substance: METFORMIN HYDROCHLORIDE
     Indication: Diabetes mellitus
     Dosage: 1000 MILLIGRAM
     Route: 048
     Dates: start: 20211001

REACTIONS (1)
  - COVID-19 [Recovered/Resolved]

NARRATIVE: CASE EVENT DATE: 20210604
